FAERS Safety Report 5501745-2 (Version None)
Quarter: 2007Q4

REPORT INFORMATION
  Report Type: 
  Country: None (occurrence: None)
  Receive Date: 20071030
  Receipt Date: 20071017
  Transmission Date: 20080405
  Serious: Yes (Hospitalization, Other)
  Sender: FDA-Public Use
  Company Number: US-AMGEN-STX226128

PATIENT
  Sex: Female

DRUGS (6)
  1. ENBREL [Suspect]
     Indication: RHEUMATOID ARTHRITIS
     Route: 058
     Dates: start: 20040101
  2. ENBREL [Suspect]
     Indication: SJOGREN'S SYNDROME
  3. METHOTREXATE [Concomitant]
     Route: 048
     Dates: start: 20020101
  4. EVOXAC [Concomitant]
     Route: 065
     Dates: start: 20050101
  5. ACTONEL [Concomitant]
     Route: 065
     Dates: start: 20040101
  6. CARBIDOPA AND LEVODOPA [Concomitant]
     Route: 065
     Dates: start: 20050101

REACTIONS (4)
  - PARKINSON'S DISEASE [None]
  - REFLUX OESOPHAGITIS [None]
  - RHEUMATOID ARTHRITIS [None]
  - SPEECH DISORDER [None]
